FAERS Safety Report 22590416 (Version 1)
Quarter: 2023Q2

REPORT INFORMATION
  Report Type: Spontaneous
  Country: US (occurrence: US)
  Receive Date: 20230612
  Receipt Date: 20230612
  Transmission Date: 20230722
  Serious: No
  Sender: FDA-Public Use
  Company Number: US-SA-SAC20230612000584

PATIENT
  Age: 13 Year
  Sex: Male
  Weight: 60 kg

DRUGS (5)
  1. DUPIXENT [Suspect]
     Active Substance: DUPILUMAB
     Indication: Dermatitis atopic
     Dosage: 300 MG, QOW
     Route: 058
     Dates: start: 20230116
  2. LEVETIRACETAM [Concomitant]
     Active Substance: LEVETIRACETAM
  3. LACOSAMIDE [Concomitant]
     Active Substance: LACOSAMIDE
  4. CARVEDILOL [Concomitant]
     Active Substance: CARVEDILOL
  5. CINACALCET HYDROCHLORIDE [Concomitant]
     Active Substance: CINACALCET HYDROCHLORIDE

REACTIONS (2)
  - Dry skin [Unknown]
  - Erythema [Not Recovered/Not Resolved]

NARRATIVE: CASE EVENT DATE: 20230601
